FAERS Safety Report 20964327 (Version 1)
Quarter: 2022Q2

REPORT INFORMATION
  Report Type: Report from Study
  Country: IT (occurrence: IT)
  Receive Date: 20220615
  Receipt Date: 20220615
  Transmission Date: 20220721
  Serious: Yes (Other)
  Sender: FDA-Public Use
  Company Number: None

PATIENT
  Age: 84 Year
  Sex: Male

DRUGS (1)
  1. RANOLAZINE [Suspect]
     Active Substance: RANOLAZINE
     Indication: Product used for unknown indication
     Dosage: 500 MG, QD, PROLONGED-RELEASE TABLETS
     Route: 048

REACTIONS (1)
  - Muscle contractions involuntary [Recovering/Resolving]

NARRATIVE: CASE EVENT DATE: 20210925
